FAERS Safety Report 26177352 (Version 1)
Quarter: 2025Q4

REPORT INFORMATION
  Report Type: Spontaneous
  Country: IL (occurrence: IL)
  Receive Date: 20251219
  Receipt Date: 20251219
  Transmission Date: 20260118
  Serious: Yes (Other)
  Sender: TEVA
  Company Number: IL-TEVA-VS-3393173

PATIENT
  Age: 69 Year
  Sex: Female

DRUGS (3)
  1. TERIPARATIDE [Suspect]
     Active Substance: TERIPARATIDE
     Indication: Osteoporosis
     Route: 065
  2. DEVICE [Suspect]
     Active Substance: DEVICE
     Route: 065
  3. LEVOTHYROXINE [Concomitant]
     Active Substance: LEVOTHYROXINE
     Indication: Hypothyroidism

REACTIONS (5)
  - Systemic lupus erythematosus [Unknown]
  - Wrong technique in device usage process [Unknown]
  - Illness [Unknown]
  - Expired product administered [Unknown]
  - Device malfunction [Unknown]
